FAERS Safety Report 6189635-6 (Version None)
Quarter: 2009Q2

REPORT INFORMATION
  Report Type: 
  Country: None (occurrence: None)
  Receive Date: 20090514
  Receipt Date: 20090507
  Transmission Date: 20091009
  Serious: Yes (Death, Hospitalization, Other)
  Sender: FDA-Public Use
  Company Number: US-CELGENEUS-163-21880-08120614

PATIENT
  Sex: Male
  Weight: 71.2 kg

DRUGS (11)
  1. REVLIMID [Suspect]
     Indication: MULTIPLE MYELOMA
     Route: 048
     Dates: start: 20081201, end: 20081206
  2. DEXAMETHASONE 4MG TAB [Suspect]
     Indication: MULTIPLE MYELOMA
     Route: 065
     Dates: start: 20081201, end: 20081205
  3. VELCADE [Suspect]
     Indication: MULTIPLE MYELOMA
     Route: 065
     Dates: start: 20081201, end: 20081204
  4. DOXIL [Suspect]
     Indication: MULTIPLE MYELOMA
     Route: 065
     Dates: start: 20081201, end: 20081201
  5. DOXIL [Suspect]
     Route: 065
     Dates: start: 20081204, end: 20081204
  6. ASPIRIN [Concomitant]
     Indication: DRUG USE FOR UNKNOWN INDICATION
     Route: 065
     Dates: start: 20081201
  7. DIFLUCAN [Concomitant]
     Indication: DRUG USE FOR UNKNOWN INDICATION
     Route: 065
     Dates: start: 20081211
  8. FLUID [Concomitant]
     Indication: FLUID REPLACEMENT
     Route: 065
     Dates: start: 20081201
  9. DILAUDID [Concomitant]
     Indication: PAIN
     Route: 065
     Dates: start: 20081201
  10. VITAMIN K [Concomitant]
     Route: 065
     Dates: start: 20081201
  11. PLATELETS [Concomitant]
     Route: 051
     Dates: start: 20081201

REACTIONS (10)
  - ANAEMIA [None]
  - ASPIRATION [None]
  - BACTERAEMIA [None]
  - BLOOD CALCIUM INCREASED [None]
  - COAGULOPATHY [None]
  - COMPRESSION FRACTURE [None]
  - HYPERVISCOSITY SYNDROME [None]
  - PLATELET FUNCTION TEST ABNORMAL [None]
  - PNEUMONITIS [None]
  - RENAL FAILURE ACUTE [None]
